FAERS Safety Report 5689533-8 (Version None)
Quarter: 2008Q1

REPORT INFORMATION
  Report Type: 
  Country: None (occurrence: None)
  Receive Date: 20080331
  Receipt Date: 20080321
  Transmission Date: 20080703
  Serious: Yes (Hospitalization)
  Sender: FDA-Public Use
  Company Number: FR-PFIZER INC-2008026548

PATIENT
  Age: 60 Year
  Sex: Female

DRUGS (7)
  1. AMLOR [Suspect]
     Indication: CARDIAC FAILURE
  2. AMLOR [Suspect]
     Indication: MITRAL VALVE DISEASE
  3. LASILIX [Suspect]
  4. CORDARONE [Concomitant]
  5. DOLIPRANE [Concomitant]
  6. VENTOLIN [Concomitant]
  7. SERETIDE [Concomitant]

REACTIONS (1)
  - HYPONATRAEMIA [None]
